FAERS Safety Report 10034201 (Version 1)
Quarter: 2014Q1

REPORT INFORMATION
  Report Type: Spontaneous
  Country: US (occurrence: None)
  Receive Date: 20140324
  Receipt Date: 20140324
  Transmission Date: 20141002
  Serious: Yes (Life-Threatening)
  Sender: FDA-Public Use
  Company Number: None

PATIENT
  Age: 39 Year
  Sex: Female
  Weight: 104.33 kg

DRUGS (1)
  1. NUVARING [Suspect]
     Indication: CONTRACEPTION
     Dosage: 5 OR 6 MONTHS 3 WK IN, OUT 1 WK, NEW RING IN 3 WKS IN +1 WK OUT VAGINAL
     Route: 067

REACTIONS (5)
  - Depression [None]
  - Emotional disorder [None]
  - Conversion disorder [None]
  - Suicidal ideation [None]
  - Self injurious behaviour [None]
